FAERS Safety Report 11809403 (Version 1)
Quarter: 2015Q4

REPORT INFORMATION
  Report Type: Spontaneous
  Country: US (occurrence: US)
  Receive Date: 20151208
  Receipt Date: 20151208
  Transmission Date: 20160305
  Serious: Yes (Other)
  Sender: FDA-Public Use
  Company Number: US-JNJCP-30000315229

PATIENT
  Sex: Female
  Weight: 86 kg

DRUGS (1)
  1. AVEENO SKIN RELIEF GENTLE SCENT NOURISHING COCONUT [Suspect]
     Active Substance: DIMETHICONE
     Indication: DRY SKIN PROPHYLAXIS
     Dosage: GENEROUS AMOUNT, FOUR TIMES A DAY FOR TWO TO THREE DAYS
     Route: 061

REACTIONS (7)
  - Application site pain [Recovering/Resolving]
  - Application site pruritus [Recovering/Resolving]
  - Application site exfoliation [Recovering/Resolving]
  - Application site swelling [Recovering/Resolving]
  - Application site reaction [Recovering/Resolving]
  - Skin wrinkling [Recovering/Resolving]
  - Application site dryness [Recovering/Resolving]
